FAERS Safety Report 25114026 (Version 3)
Quarter: 2025Q2

REPORT INFORMATION
  Report Type: Spontaneous
  Country: JP (occurrence: JP)
  Receive Date: 20250324
  Receipt Date: 20250429
  Transmission Date: 20250717
  Serious: Yes (Hospitalization)
  Sender: NEUROCRINE BIOSCIENCES
  Company Number: JP-MTPC-MTPC2025-0004937

PATIENT
  Age: 55 Year
  Sex: Male

DRUGS (4)
  1. VALBENAZINE [Suspect]
     Active Substance: VALBENAZINE
     Indication: Product used for unknown indication
     Route: 048
     Dates: start: 20250228
  2. VALBENAZINE [Suspect]
     Active Substance: VALBENAZINE
     Route: 048
     Dates: start: 20250208
  3. ABILIFY [Concomitant]
     Active Substance: ARIPIPRAZOLE
     Route: 048
     Dates: start: 20250208
  4. ABILIFY [Concomitant]
     Active Substance: ARIPIPRAZOLE
     Route: 051

REACTIONS (1)
  - Muscular weakness [Unknown]

NARRATIVE: CASE EVENT DATE: 20250308
